FAERS Safety Report 6734183-5 (Version None)
Quarter: 2010Q2

REPORT INFORMATION
  Report Type: 
  Country: None (occurrence: None)
  Receive Date: 20100518
  Receipt Date: 20100505
  Transmission Date: 20101027
  Serious: Yes (Other)
  Sender: FDA-Public Use
  Company Number: 1-22509207

PATIENT
  Age: 55 Year
  Sex: Female

DRUGS (5)
  1. MEDROXYPROGESTERONE (UNK STENGTH) [Suspect]
     Indication: MENOPAUSE
     Dosage: ORAL
     Route: 048
     Dates: start: 19920101, end: 19980101
  2. MEDROXYPROGESTERONE (UNK STENGTH) [Suspect]
     Indication: OSTEOPOROSIS
     Dosage: ORAL
     Route: 048
     Dates: start: 19920101, end: 19980101
  3. PREMARIN [Suspect]
     Indication: MENOPAUSE
     Dosage: ORAL
     Route: 048
     Dates: start: 19920101, end: 19980101
  4. PREMARIN [Suspect]
     Indication: OSTEOPOROSIS
     Dosage: ORAL
     Route: 048
     Dates: start: 19920101, end: 19980101
  5. MEDROXYPROGESTERONE (SANDOZ) (UNK STRENGTH) [Suspect]
     Indication: OSTEOPOROSIS
     Dosage: ORAL
     Route: 048
     Dates: start: 19920101, end: 19980101

REACTIONS (8)
  - ANXIETY [None]
  - BREAST CANCER IN SITU [None]
  - DEFORMITY [None]
  - EMOTIONAL DISORDER [None]
  - MULTIPLE INJURIES [None]
  - OESTROGEN RECEPTOR ASSAY POSITIVE [None]
  - PAIN [None]
  - PROGESTERONE RECEPTOR ASSAY POSITIVE [None]
